FAERS Safety Report 6989000-5 (Version None)
Quarter: 2010Q3

REPORT INFORMATION
  Report Type: 
  Country: None (occurrence: None)
  Receive Date: 20100916
  Receipt Date: 20090929
  Transmission Date: 20110219
  Serious: Yes (Other)
  Sender: FDA-Public Use
  Company Number: FR-PFIZER INC-2009220676

PATIENT
  Sex: Male
  Weight: 78 kg

DRUGS (5)
  1. LYRICA [Suspect]
     Indication: NECK PAIN
     Dosage: 50 MG, 1X/DAY
     Dates: start: 20090301, end: 20090401
  2. TAHOR [Concomitant]
  3. CHONDROSULF [Concomitant]
  4. PAROXETINE [Concomitant]
  5. MEBEVERINE [Concomitant]
     Dosage: UNK
     Dates: start: 20090401

REACTIONS (3)
  - COUGH [None]
  - DYSPNOEA [None]
  - HEADACHE [None]
